FAERS Safety Report 4984169-6 (Version None)
Quarter: 2006Q2

REPORT INFORMATION
  Report Type: 
  Country: None (occurrence: None)
  Receive Date: 20060427
  Receipt Date: 20060324
  Transmission Date: 20061013
  Serious: Yes (Hospitalization)
  Sender: FDA-Public Use
  Company Number: BR-BRISTOL-MYERS SQUIBB COMPANY-13327994

PATIENT
  Age: 59 Year
  Sex: Male

DRUGS (4)
  1. ORENCIA [Suspect]
     Indication: RHEUMATOID ARTHRITIS
     Route: 042
     Dates: start: 20040506, end: 20060216
  2. METICORTEN [Concomitant]
     Dates: start: 19990401
  3. METOPROLOL [Concomitant]
     Dates: start: 20051229
  4. SIMVASTATIN [Concomitant]
     Dates: start: 20051229

REACTIONS (1)
  - OSTEOMYELITIS CHRONIC [None]
